FAERS Safety Report 12092149 (Version 3)
Quarter: 2016Q2

REPORT INFORMATION
  Report Type: Spontaneous
  Country: FI (occurrence: FI)
  Receive Date: 20160219
  Receipt Date: 20160413
  Transmission Date: 20160815
  Serious: Yes (Other)
  Sender: FDA-Public Use
  Company Number: FI-ROCHE-1713486

PATIENT
  Age: 79 Year
  Sex: Male

DRUGS (8)
  1. GAZYVARO [Suspect]
     Active Substance: OBINUTUZUMAB
     Indication: CHRONIC LYMPHOCYTIC LEUKAEMIA
     Dosage: ADMINISTERED ON CYCLE 1 DAY 1
     Route: 065
     Dates: start: 20160202
  2. GAZYVARO [Suspect]
     Active Substance: OBINUTUZUMAB
     Dosage: CYCLE 1 DAY 2
     Route: 065
     Dates: start: 20160203
  3. LEUKERAN [Suspect]
     Active Substance: CHLORAMBUCIL
     Indication: CHRONIC LYMPHOCYTIC LEUKAEMIA
     Dosage: ADMINISTERED ON CYCLE 1 DAY ONE?DRUD INTERRUPTED ON 16/FEB/2016
     Route: 065
     Dates: start: 20160202
  4. GAZYVARO [Suspect]
     Active Substance: OBINUTUZUMAB
     Route: 065
     Dates: start: 2016
  5. APURIN [Concomitant]
     Active Substance: ALLOPURINOL
  6. COTRIM D.S. [Concomitant]
     Active Substance: SULFAMETHOXAZOLE\TRIMETHOPRIM
  7. GAZYVARO [Suspect]
     Active Substance: OBINUTUZUMAB
     Dosage: CYCLE 1 DAY 8?DRUG INTERRUPTED ON 16/FEB/2016
     Route: 065
     Dates: start: 20160209
  8. NEUROBION FORTE [Concomitant]
     Active Substance: CYANOCOBALAMIN\PYRIDOXINE HYDROCHLORIDE\THIAMINE DISULFIDE

REACTIONS (1)
  - Pancytopenia [Recovered/Resolved]

NARRATIVE: CASE EVENT DATE: 20160204
